FAERS Safety Report 4636627-1 (Version None)
Quarter: 2005Q2

REPORT INFORMATION
  Report Type: 
  Country: None (occurrence: None)
  Receive Date: 20050414
  Receipt Date: 20050407
  Transmission Date: 20051028
  Serious: Yes (Other)
  Sender: FDA-Public Use
  Company Number: 2005056309

PATIENT
  Age: 58 Year
  Sex: Female

DRUGS (4)
  1. ATORVASTATIN CALCIUM [Suspect]
     Indication: ILL-DEFINED DISORDER
     Dosage: ORAL
     Route: 048
  2. FELODIPINE [Concomitant]
  3. VASERETIC [Concomitant]
  4. LANSOPRAZOLE [Concomitant]

REACTIONS (1)
  - RETINAL HAEMORRHAGE [None]
